FAERS Safety Report 20661444 (Version 1)
Quarter: 2022Q2

REPORT INFORMATION
  Report Type: Spontaneous
  Country: US (occurrence: US)
  Receive Date: 20220401
  Receipt Date: 20220401
  Transmission Date: 20220720
  Serious: Yes (Other)
  Sender: FDA-Public Use
  Company Number: US-BRISTOL-MYERS SQUIBB COMPANY-2022-012332

PATIENT
  Sex: Male

DRUGS (1)
  1. ORENCIA [Suspect]
     Active Substance: ABATACEPT
     Indication: Rheumatoid arthritis
     Route: 058
     Dates: start: 20211102

REACTIONS (7)
  - Pain [Unknown]
  - Presyncope [Unknown]
  - Haematemesis [Unknown]
  - Intervertebral disc protrusion [Unknown]
  - HIV test [Unknown]
  - Systemic lupus erythematosus [Unknown]
  - Psoriatic arthropathy [Unknown]
